FAERS Safety Report 22099691 (Version 1)
Quarter: 2023Q1

REPORT INFORMATION
  Report Type: Spontaneous
  Country: US (occurrence: None)
  Receive Date: 20230315
  Receipt Date: 20230315
  Transmission Date: 20230418
  Serious: Yes (Hospitalization)
  Sender: FDA-Public Use
  Company Number: None

PATIENT
  Age: 72 Year
  Sex: Male
  Weight: 113.81 kg

DRUGS (26)
  1. LENALIDOMIDE [Suspect]
     Active Substance: LENALIDOMIDE
     Indication: Plasma cell myeloma
     Dosage: OTHER FREQUENCY : 21DON7DOFF;?
     Route: 048
  2. ACYCLOVIR [Concomitant]
  3. AMIODARONE [Concomitant]
  4. AMLODIPINE [Concomitant]
  5. ATORVASTATIN [Concomitant]
  6. CETIRIZINE [Concomitant]
  7. CIPRODEX [Concomitant]
  8. CLOPIDOGREL [Concomitant]
     Active Substance: CLOPIDOGREL BISULFATE
  9. COLACE [Concomitant]
  10. DEXAMETHASONE [Concomitant]
  11. ELIQUIS [Concomitant]
  12. FLONASE [Concomitant]
  13. FOLIC ACID [Concomitant]
  14. GLYCOLAX [Concomitant]
  15. GUAIFENESIN [Concomitant]
     Active Substance: GUAIFENESIN
  16. ISOSORBIDE [Concomitant]
  17. LIDOCAINE [Concomitant]
  18. METHOTREXATE [Concomitant]
  19. MS CONTIN [Concomitant]
  20. NITROSTAT [Concomitant]
  21. PAXLOVID [Concomitant]
  22. PERCOCET [Concomitant]
  23. PREDNISONE [Concomitant]
  24. PREGABALIN [Concomitant]
     Active Substance: PREGABALIN
  25. PROVENTIL [Concomitant]
     Active Substance: ALBUTEROL
  26. TRELEGY [Concomitant]

REACTIONS (1)
  - Hospitalisation [None]
